FAERS Safety Report 17675101 (Version 4)
Quarter: 2020Q2

REPORT INFORMATION
  Report Type: Spontaneous
  Country: US (occurrence: US)
  Receive Date: 20200416
  Receipt Date: 20200520
  Transmission Date: 20200714
  Serious: Yes (Other)
  Sender: FDA-Public Use
  Company Number: NVSC2020US099741

PATIENT
  Age: 78 Year
  Sex: Female

DRUGS (7)
  1. BEOVU [Suspect]
     Active Substance: BROLUCIZUMAB-DBLL
     Dosage: 6 MG, QMO
     Route: 047
     Dates: start: 20200326
  2. EYLEA [Concomitant]
     Active Substance: AFLIBERCEPT
     Dosage: UNK MG
     Route: 065
     Dates: start: 20190613
  3. BEOVU [Suspect]
     Active Substance: BROLUCIZUMAB-DBLL
     Indication: NEOVASCULAR AGE-RELATED MACULAR DEGENERATION
     Dosage: 6 MG, QMO
     Route: 047
  4. EYLEA [Concomitant]
     Active Substance: AFLIBERCEPT
     Dosage: UNK
     Dates: start: 20190808
  5. BEOVU [Suspect]
     Active Substance: BROLUCIZUMAB-DBLL
     Dosage: 6 MG, UNKNOWN
     Route: 031
     Dates: start: 20200130
  6. EYLEA [Concomitant]
     Active Substance: AFLIBERCEPT
     Dosage: UNK
     Dates: start: 20190310
  7. EYLEA [Concomitant]
     Active Substance: AFLIBERCEPT
     Dosage: UNK
     Route: 065
     Dates: start: 20190312

REACTIONS (5)
  - Uveitis [Recovering/Resolving]
  - Eye inflammation [Unknown]
  - Vision blurred [Unknown]
  - Vitreal cells [Unknown]
  - Vitreous floaters [Unknown]

NARRATIVE: CASE EVENT DATE: 20200326
